FAERS Safety Report 25264418 (Version 1)
Quarter: 2025Q2

REPORT INFORMATION
  Report Type: Spontaneous
  Country: CN (occurrence: CN)
  Receive Date: 20250502
  Receipt Date: 20250502
  Transmission Date: 20250717
  Serious: Yes (Hospitalization, Other)
  Sender: JOHNSON AND JOHNSON
  Company Number: CN-BAYER-2025A056777

PATIENT
  Age: 70 Year
  Sex: Male
  Weight: 77 kg

DRUGS (1)
  1. XARELTO [Suspect]
     Active Substance: RIVAROXABAN
     Indication: Anticoagulant therapy
     Dosage: 15 MG, QD
     Route: 048
     Dates: start: 20220701, end: 20250417

REACTIONS (11)
  - Prothrombin time abnormal [Recovered/Resolved]
  - Cataract [Unknown]
  - Age-related macular degeneration [Unknown]
  - Retinal degeneration [Unknown]
  - Retinal tear [Unknown]
  - Incorrect dose administered [Unknown]
  - Product prescribing issue [Unknown]
  - Creatinine renal clearance decreased [Unknown]
  - Dry eye [Unknown]
  - Hypertension [Unknown]
  - Hyperuricaemia [Unknown]

NARRATIVE: CASE EVENT DATE: 20220701
